FAERS Safety Report 21724224 (Version 1)
Quarter: 2022Q4

REPORT INFORMATION
  Report Type: Spontaneous
  Country: FR (occurrence: FR)
  Receive Date: 20221213
  Receipt Date: 20221213
  Transmission Date: 20230113
  Serious: Yes (Other)
  Sender: FDA-Public Use
  Company Number: FR-BAXTER-2022BAX026198

PATIENT
  Age: 73 Year
  Sex: Female

DRUGS (4)
  1. DEXAMETHASONE [Suspect]
     Active Substance: DEXAMETHASONE
     Indication: Product used for unknown indication
     Dosage: (TREATMENT LINE NO: 1, TOTAL DURATION: 1.6 MONTHS) 20 MG/DOSE DAY
     Route: 065
     Dates: end: 20181218
  2. CYCLOPHOSPHAMIDE [Suspect]
     Active Substance: CYCLOPHOSPHAMIDE
     Indication: Product used for unknown indication
     Dosage: (TREATMENT LINE NUMBER: 1, TOTAL DURATION: 1.6 MONTHS) 500 MG/DOSE D1 AND D8
     Route: 065
     Dates: end: 20181218
  3. BORTEZOMIB [Suspect]
     Active Substance: BORTEZOMIB
     Indication: Product used for unknown indication
     Dosage: (TREATMENT LINE NO: 1, TOTAL DURATION: 1.6 MONTHS)  1.3 MG/M2/DOSE D1 D4 D8
     Route: 065
     Dates: end: 20181218
  4. VELCADE [Suspect]
     Active Substance: BORTEZOMIB
     Indication: Product used for unknown indication
     Dosage: (TREATMENT LINE NO: 1, TOTAL DURATION: 1.6 MONTHS)  (THE FOLLOWING DAY)
     Route: 065
     Dates: end: 20181218

REACTIONS (1)
  - Renal impairment [Unknown]

NARRATIVE: CASE EVENT DATE: 20181201
